FAERS Safety Report 21283145 (Version 3)
Quarter: 2022Q4

REPORT INFORMATION
  Report Type: Spontaneous
  Country: FR (occurrence: FR)
  Receive Date: 20220901
  Receipt Date: 20221103
  Transmission Date: 20230113
  Serious: No
  Sender: FDA-Public Use
  Company Number: FR-ORGANON-O2208FRA002317

PATIENT
  Sex: Female

DRUGS (7)
  1. NEXPLANON [Suspect]
     Active Substance: ETONOGESTREL
     Indication: Contraception
     Dosage: 1 IMPLANT IN THE LEFT ARM
     Route: 059
     Dates: start: 202209
  2. SERTRALINE [Concomitant]
     Active Substance: SERTRALINE HYDROCHLORIDE
     Dosage: UNK
  3. VENLAFAXINE [Concomitant]
     Active Substance: VENLAFAXINE HYDROCHLORIDE
     Dosage: UNK
  4. PANTOPRAZOLE [Concomitant]
     Active Substance: PANTOPRAZOLE
     Indication: Gastric disorder
     Dosage: UNK
  5. PANTOPRAZOLE [Concomitant]
     Active Substance: PANTOPRAZOLE
     Indication: Selective eating disorder
  6. XANAX [Concomitant]
     Active Substance: ALPRAZOLAM
     Dosage: UNK
  7. OXAZEPAM [Concomitant]
     Active Substance: OXAZEPAM
     Indication: Mental disorder
     Dosage: UNK

REACTIONS (8)
  - Eating disorder [Unknown]
  - Anaemia [Unknown]
  - Hypomenorrhoea [Unknown]
  - Weight increased [Recovered/Resolved]
  - Dysmenorrhoea [Recovering/Resolving]
  - Weight decreased [Unknown]
  - Vomiting [Unknown]
  - Menstruation irregular [Recovering/Resolving]

NARRATIVE: CASE EVENT DATE: 20220101
